FAERS Safety Report 9911857 (Version 1)
Quarter: 2014Q1

REPORT INFORMATION
  Report Type: Spontaneous
  Country: US (occurrence: US)
  Receive Date: 20140219
  Receipt Date: 20140219
  Transmission Date: 20141002
  Serious: No
  Sender: FDA-Public Use
  Company Number: US-MYLANLABS-2013S1009903

PATIENT
  Age: 57 Year
  Sex: Female

DRUGS (15)
  1. EPINEPHRINE [Suspect]
  2. CLINDAMYCIN HCL [Suspect]
  3. METHOTREXATE [Concomitant]
  4. LEUCOVORIN [Concomitant]
  5. TRAMADOL [Concomitant]
  6. METOPROLOL [Concomitant]
  7. VOLTAREN [Concomitant]
  8. LEKOVIT CA [Concomitant]
  9. OXCARBAZEPINE [Concomitant]
  10. ASPIRIN [Concomitant]
  11. LIPITOR [Concomitant]
  12. PLAQUENIL [Concomitant]
  13. MULTIVITAMINS [Concomitant]
  14. IBUPROFEN [Concomitant]
  15. CITALOPRAM [Concomitant]

REACTIONS (1)
  - Drug hypersensitivity [Unknown]
